FAERS Safety Report 20144958 (Version 1)
Quarter: 2021Q4

REPORT INFORMATION
  Report Type: Spontaneous
  Country: None (occurrence: US)
  Receive Date: 20211203
  Receipt Date: 20211203
  Transmission Date: 20220304
  Serious: No
  Sender: FDA-Public Use
  Company Number: US-ITALFARMACO SPA-2122646

PATIENT
  Age: 64 Year
  Sex: Male

DRUGS (10)
  1. TIGLUTIK [Suspect]
     Active Substance: RILUZOLE
     Indication: Amyotrophic lateral sclerosis
     Route: 050
     Dates: start: 20210904
  2. BACLOFEN [Concomitant]
     Active Substance: BACLOFEN
  3. BUPHENYL [Concomitant]
     Active Substance: SODIUM PHENYLBUTYRATE
  4. CLONAZEPAM [Concomitant]
     Active Substance: CLONAZEPAM
  5. ENSURE [Concomitant]
     Active Substance: AMINO ACIDS\DEXTROSE\ELECTROLYTES NOS\SOYBEAN OIL\VITAMINS
  6. LOSARTAN [Concomitant]
     Active Substance: LOSARTAN
  7. MIRALAX [Concomitant]
     Active Substance: POLYETHYLENE GLYCOL 3350
  8. OXYBUTYNIN. [Concomitant]
     Active Substance: OXYBUTYNIN CHLORIDE
  9. URSODOXICOLTAURINE [Concomitant]
     Active Substance: URSODOXICOLTAURINE
  10. ZOLPIDEM [Concomitant]
     Active Substance: ZOLPIDEM TARTRATE

REACTIONS (1)
  - Flatulence [Not Recovered/Not Resolved]

NARRATIVE: CASE EVENT DATE: 20211018
